FAERS Safety Report 14172684 (Version 1)
Quarter: 2017Q4

REPORT INFORMATION
  Report Type: Spontaneous
  Country: US (occurrence: None)
  Receive Date: 20171108
  Receipt Date: 20171108
  Transmission Date: 20180321
  Serious: Yes (Disabling)
  Sender: FDA-Public Use
  Company Number: None

PATIENT
  Age: 74 Year
  Sex: Female
  Weight: 53.07 kg

DRUGS (16)
  1. IRON [Concomitant]
     Active Substance: IRON
  2. METFORMIN GENERIC FOR GLUCOPHAGE [Concomitant]
  3. RAMIPRIL GENERIC FOR ALTACE [Concomitant]
  4. TYLENOL X-STRENGTH [Concomitant]
  5. CRANBERRY CAPSULE [Concomitant]
     Active Substance: DIETARY SUPPLEMENT
  6. PIOGLITAZONE TABLET 15MG [Suspect]
     Active Substance: PIOGLITAZONE
     Indication: GLYCOSYLATED HAEMOGLOBIN INCREASED
     Route: 048
     Dates: start: 20170317, end: 20170712
  7. VITAMIN D3 W/MSM [Concomitant]
  8. LUTEIN W/ZEAXANTHIN [Concomitant]
  9. FISH OIL [Concomitant]
     Active Substance: FISH OIL
  10. 81 ASPIRIN [Concomitant]
  11. B-6 COMPLETE MULTI-VITAMIN (WOMEN 50+) [Concomitant]
  12. MAGNESIUM [Concomitant]
     Active Substance: MAGNESIUM
  13. PIOGLITAZONE 30MG TABLET [Suspect]
     Active Substance: PIOGLITAZONE
     Indication: GLYCOSYLATED HAEMOGLOBIN INCREASED
     Route: 048
     Dates: start: 20170712, end: 20170917
  14. GLUCOSAMINE CHONDROITIN [Concomitant]
     Active Substance: CHONDROITIN SULFATE (BOVINE)\GLUCOSAMINE HYDROCHLORIDE
  15. CITRACAL CITRATE [Concomitant]
  16. GLIPIZIDE GENERIC FOR GLUCOTROL [Concomitant]

REACTIONS (7)
  - Gait disturbance [None]
  - Sleep disorder [None]
  - Ankle fracture [None]
  - Peripheral swelling [None]
  - Bursitis [None]
  - Back pain [None]
  - Compression fracture [None]

NARRATIVE: CASE EVENT DATE: 20170418
